FAERS Safety Report 9695846 (Version 1)
Quarter: 2013Q4

REPORT INFORMATION
  Report Type: Report from Study
  Country: US (occurrence: US)
  Receive Date: 20131119
  Receipt Date: 20131119
  Transmission Date: 20140711
  Serious: Yes (Hospitalization)
  Sender: FDA-Public Use
  Company Number: US-JNJFOC-20131107098

PATIENT
  Age: 65 Year
  Sex: Female
  Weight: 69.85 kg

DRUGS (1)
  1. REMICADE [Suspect]
     Indication: PSORIATIC ARTHROPATHY
     Route: 042
     Dates: start: 201303, end: 20131101

REACTIONS (5)
  - Renal failure [Unknown]
  - Coronary artery occlusion [Unknown]
  - Electrolyte depletion [Unknown]
  - Adverse event [Unknown]
  - Infusion related reaction [Unknown]
